FAERS Safety Report 7756286-9 (Version None)
Quarter: 2011Q3

REPORT INFORMATION
  Report Type: 
  Country: None (occurrence: None)
  Receive Date: 20110916
  Receipt Date: 20110907
  Transmission Date: 20111222
  Serious: Yes (Death, Hospitalization)
  Sender: FDA-Public Use
  Company Number: US-CELGENEUS-163-21880-11032628

PATIENT
  Sex: Female
  Weight: 83.99 kg

DRUGS (51)
  1. CALCIUM CARBONATE [Concomitant]
     Route: 065
  2. MAG-OX [Concomitant]
     Route: 065
  3. ROXICODONE [Concomitant]
     Route: 065
  4. VALTREX [Concomitant]
     Indication: PROPHYLAXIS
     Route: 065
  5. M.V.I. [Concomitant]
     Route: 065
  6. PROCHLORPERAZINE [Concomitant]
     Route: 065
  7. TYLENOL-500 [Concomitant]
     Route: 065
  8. PLATELETS [Concomitant]
     Route: 041
     Dates: start: 20110301, end: 20110301
  9. PIPERACILLIN AND TAZOBACTAM [Concomitant]
     Dosage: 2.25 GRAM
     Route: 041
  10. FILGRASTIM [Concomitant]
     Dosage: 480 MICROGRAM
     Route: 058
  11. DEXAMETHASONE [Concomitant]
     Route: 065
  12. KLOR-CON [Concomitant]
     Route: 065
  13. SINGULAIR [Concomitant]
     Route: 065
  14. SYNTHROID [Concomitant]
     Dosage: 37.5 MICROGRAM
     Route: 041
  15. ZOFRAN [Concomitant]
     Route: 065
  16. AUGMENTIN '125' [Concomitant]
     Route: 048
     Dates: start: 20110301
  17. TRIAMCINOLONE [Concomitant]
     Route: 061
  18. BUDESONIDE FORMOTEROL [Concomitant]
     Dosage: 2 PUFF
     Route: 055
  19. REVLIMID [Suspect]
     Indication: LYMPHOMA
     Dosage: 20 MILLIGRAM
     Route: 048
     Dates: start: 20110215
  20. REVLIMID [Suspect]
     Route: 048
     Dates: start: 20110301
  21. CODEINE SULFATE [Concomitant]
     Indication: COUGH
     Route: 065
  22. FOLIC ACID [Concomitant]
     Route: 065
  23. GABAPENTIN [Concomitant]
     Route: 065
  24. SERTRALINE HYDROCHLORIDE [Concomitant]
     Indication: DEPRESSION
     Route: 065
  25. ALBUTEROL [Concomitant]
     Route: 065
  26. LORAZEPAM [Concomitant]
     Dosage: .5 MILLIGRAM
     Route: 041
  27. VORICONAZOLE [Concomitant]
     Indication: SEPSIS
     Dosage: 300 MILLIGRAM
     Route: 065
  28. NOREPINEPHRINE BITARTRATE [Concomitant]
     Dosage: 35 MCG/MIN.
     Route: 065
     Dates: start: 20110630
  29. BACTRIM [Concomitant]
     Route: 065
  30. NASONEX [Concomitant]
     Route: 065
  31. SIMVASTATIN [Concomitant]
     Route: 065
  32. GENTAMICIN [Concomitant]
     Dosage: 60 MILLIGRAM
     Route: 041
  33. SYMBICORT [Concomitant]
     Route: 065
  34. FENTANYL [Concomitant]
     Dosage: 50 MCG/HR
     Route: 065
     Dates: start: 20110630
  35. LINEZOLID [Concomitant]
     Dosage: 600 MILLIGRAM
     Route: 065
  36. SYNTHROID [Concomitant]
     Route: 065
  37. VITAMIN D [Concomitant]
     Route: 065
  38. ZOSYN [Concomitant]
     Indication: SEPSIS
     Route: 065
  39. LORAZEPAM [Concomitant]
     Route: 065
  40. SODIUM CHLORIDE [Concomitant]
     Dosage: 250 MILLILITER
     Route: 040
  41. VANCOMYCIN [Concomitant]
     Dosage: 1000 MILLIGRAM
     Route: 041
  42. HYDROCORTISONE SODIUM [Concomitant]
     Dosage: 50 MILLIGRAM/MILLILITERS
     Route: 065
  43. COLACE [Concomitant]
     Route: 065
  44. FLUCONAZOLE [Concomitant]
     Route: 065
  45. PROTONIX [Concomitant]
     Route: 065
  46. PROTONIX [Concomitant]
     Dosage: 40 MILLIGRAM
     Route: 041
  47. SENNA [Concomitant]
     Route: 065
  48. SERTRALINE HYDROCHLORIDE [Concomitant]
     Indication: ANXIETY
  49. VALTREX [Concomitant]
     Dosage: 500 MILLIGRAM
     Route: 065
  50. MIDAZOLAM HCL [Concomitant]
     Dosage: 1MG/HR
     Route: 065
  51. PHYTONADIONE [Concomitant]
     Dosage: 5 MILLIGRAM
     Route: 041

REACTIONS (5)
  - NEUTROPENIA [None]
  - INFECTION [None]
  - LYMPHOMA [None]
  - DEATH [None]
  - SEPSIS [None]
